FAERS Safety Report 6054685-7 (Version None)
Quarter: 2009Q1

REPORT INFORMATION
  Report Type: 
  Country: None (occurrence: None)
  Receive Date: 20090128
  Receipt Date: 20090126
  Transmission Date: 20090719
  Serious: Yes (Hospitalization)
  Sender: FDA-Public Use
  Company Number: FR-WYE-G03000509

PATIENT
  Sex: Male

DRUGS (1)
  1. ADVIL LIQUI-GELS [Suspect]
     Dosage: 2 TABLETS OF 400 MG
     Route: 064
     Dates: start: 20080907, end: 20080907

REACTIONS (2)
  - JAUNDICE NEONATAL [None]
  - PREMATURE BABY [None]
